FAERS Safety Report 22057238 (Version 1)
Quarter: 2023Q1

REPORT INFORMATION
  Report Type: Spontaneous
  Country: US (occurrence: US)
  Receive Date: 20230303
  Receipt Date: 20230303
  Transmission Date: 20230418
  Serious: No
  Sender: FDA-Public Use
  Company Number: US-BRISTOL-MYERS SQUIBB COMPANY-2023-031187

PATIENT
  Age: 58 Year
  Sex: Male
  Weight: 84.37 kg

DRUGS (1)
  1. REVLIMID [Suspect]
     Active Substance: LENALIDOMIDE
     Indication: B-cell lymphoma
     Dosage: 21D ON 7D OFF
     Route: 048

REACTIONS (1)
  - Chest discomfort [Not Recovered/Not Resolved]
